FAERS Safety Report 12074542 (Version 1)
Quarter: 2016Q1

REPORT INFORMATION
  Report Type: Spontaneous
  Country: US (occurrence: US)
  Receive Date: 20160212
  Receipt Date: 20160212
  Transmission Date: 20160526
  Serious: Yes (Other)
  Sender: FDA-Public Use
  Company Number: US-TEVA-633417USA

PATIENT
  Sex: Male

DRUGS (3)
  1. COPAXONE [Suspect]
     Active Substance: GLATIRAMER ACETATE
     Indication: MULTIPLE SCLEROSIS
     Dosage: UNKNOWN FORM STRENGTH
  2. FLOMAX [Suspect]
     Active Substance: TAMSULOSIN HYDROCHLORIDE
     Route: 065
  3. CIPRO [Suspect]
     Active Substance: CIPROFLOXACIN HYDROCHLORIDE
     Route: 065

REACTIONS (13)
  - Urinary retention [Unknown]
  - Dizziness postural [Recovered/Resolved]
  - Bladder disorder [Unknown]
  - Micturition urgency [Unknown]
  - Memory impairment [Recovered/Resolved]
  - Fatigue [Recovered/Resolved]
  - Back pain [Recovering/Resolving]
  - Drug effect increased [Recovered/Resolved]
  - Abdominal distension [Recovered/Resolved]
  - Demyelination [Recovering/Resolving]
  - Constipation [Recovering/Resolving]
  - Multiple sclerosis relapse [Recovering/Resolving]
  - Hypotension [Recovered/Resolved]

NARRATIVE: CASE EVENT DATE: 201410
